FAERS Safety Report 6251021-8 (Version None)
Quarter: 2009Q2

REPORT INFORMATION
  Report Type: 
  Country: None (occurrence: None)
  Receive Date: 20090630
  Receipt Date: 20090609
  Transmission Date: 20091009
  Serious: No
  Sender: FDA-Public Use
  Company Number: US-BAYER-200924150NA

PATIENT
  Age: 42 Year
  Sex: Female
  Weight: 54 kg

DRUGS (2)
  1. ULTRAVIST 300 [Suspect]
     Indication: COMPUTERISED TOMOGRAM ABDOMEN
     Dosage: TOTAL DAILY DOSE: 81 ML
     Route: 042
     Dates: start: 20090609, end: 20090609
  2. EZM READICAT [Concomitant]

REACTIONS (2)
  - NAUSEA [None]
  - VOMITING [None]
